FAERS Safety Report 18516835 (Version 2)
Quarter: 2020Q4

REPORT INFORMATION
  Report Type: Spontaneous
  Country: US (occurrence: US)
  Receive Date: 20201118
  Receipt Date: 20201217
  Transmission Date: 20210114
  Serious: Yes (Other)
  Sender: FDA-Public Use
  Company Number: US-SPECGX-T202002255

PATIENT
  Age: 56 Year
  Sex: Female

DRUGS (2)
  1. METHADONE [Suspect]
     Active Substance: METHADONE HYDROCHLORIDE
     Indication: BACK PAIN
  2. METHADONE [Suspect]
     Active Substance: METHADONE HYDROCHLORIDE
     Indication: DRUG DEPENDENCE
     Dosage: UNK
     Route: 065

REACTIONS (12)
  - Unresponsive to stimuli [Unknown]
  - Hypotension [Unknown]
  - Metabolic acidosis [Unknown]
  - Miosis [Unknown]
  - Mental status changes [Unknown]
  - Electrocardiogram QT prolonged [Unknown]
  - Acute right ventricular failure [Unknown]
  - Cardiogenic shock [Unknown]
  - Intentional overdose [Unknown]
  - Sinus tachycardia [Unknown]
  - Suicide attempt [Unknown]
  - Cardiotoxicity [Unknown]
